FAERS Safety Report 10007431 (Version 1)
Quarter: 2014Q1

REPORT INFORMATION
  Report Type: Spontaneous
  Country: IT (occurrence: IT)
  Receive Date: 20140313
  Receipt Date: 20140313
  Transmission Date: 20141002
  Serious: Yes (Other)
  Sender: FDA-Public Use
  Company Number: IT-GLAXOSMITHKLINE-B0976617A

PATIENT
  Age: 80 Year
  Sex: Female

DRUGS (11)
  1. ZOVIRAX [Suspect]
     Indication: HERPES ZOSTER
     Dosage: 3TAB PER DAY
     Route: 048
     Dates: start: 20140201, end: 20140204
  2. BISOPROLOL FUMARATE [Concomitant]
     Route: 048
  3. COUMADIN [Concomitant]
  4. SERETIDE 50MCG/100MCG [Concomitant]
     Route: 055
  5. SPIRIVA [Concomitant]
  6. LANOXIN [Concomitant]
  7. PEPTAZOL [Concomitant]
  8. ZYLORIC [Concomitant]
  9. LASIX [Concomitant]
  10. KANRENOL [Concomitant]
     Route: 048
  11. ISOCEF [Concomitant]
     Route: 048

REACTIONS (5)
  - Oedema peripheral [Recovering/Resolving]
  - Rash maculo-papular [Recovering/Resolving]
  - Erysipelas [Recovering/Resolving]
  - Varicose vein [Recovering/Resolving]
  - Urticaria [Recovering/Resolving]
